FAERS Safety Report 25008530 (Version 1)
Quarter: 2025Q1

REPORT INFORMATION
  Report Type: Spontaneous
  Country: US (occurrence: None)
  Receive Date: 20250224
  Receipt Date: 20250224
  Transmission Date: 20250408
  Serious: No
  Sender: FDA-CTU
  Company Number: None

PATIENT

DRUGS (1)
  1. BISMUTH SUBCITRATE POTASSIUM\METRONIDAZOLE\TETRACYCLINE [Suspect]
     Active Substance: BISMUTH SUBCITRATE POTASSIUM\METRONIDAZOLE\TETRACYCLINE

REACTIONS (2)
  - Incorrect dose administered [None]
  - Product administration error [None]

NARRATIVE: CASE EVENT DATE: 20250224
